FAERS Safety Report 10431672 (Version 2)
Quarter: 2015Q1

REPORT INFORMATION
  Report Type: Spontaneous
  Country: JP (occurrence: JP)
  Receive Date: 20140904
  Receipt Date: 20150312
  Transmission Date: 20150720
  Serious: Yes (Other)
  Sender: FDA-Public Use
  Company Number: PHHY2014JP110113

PATIENT
  Age: 0 Day
  Sex: Female

DRUGS (1)
  1. VOLTAREN [Suspect]
     Active Substance: DICLOFENAC SODIUM
     Indication: PRODUCT USED FOR UNKNOWN INDICATION
     Dosage: MATERNAL DOSE 25 MG (TWO SUPPOSITORY)
     Route: 064

REACTIONS (11)
  - Cyanosis neonatal [Unknown]
  - Premature baby [Unknown]
  - Foetal exposure during pregnancy [Unknown]
  - Skull malformation [Unknown]
  - Dysphagia [Unknown]
  - Nervous system disorder [Unknown]
  - Infantile vomiting [Unknown]
  - Anaemia [Unknown]
  - Autism [Unknown]
  - Mental retardation [Unknown]
  - Neonatal disorder [Unknown]

NARRATIVE: CASE EVENT DATE: 19950329
